FAERS Safety Report 8361520-0 (Version None)
Quarter: 2012Q2

REPORT INFORMATION
  Report Type: 
  Country: None (occurrence: None)
  Receive Date: 20120515
  Receipt Date: 20120502
  Transmission Date: 20120825
  Serious: Yes (Life-Threatening, Hospitalization, Other)
  Sender: FDA-Public Use
  Company Number: FR-ELI_LILLY_AND_COMPANY-FR201205000427

PATIENT
  Sex: Male

DRUGS (8)
  1. PROZAC [Suspect]
     Dosage: UNK
  2. ZYPREXA [Suspect]
     Dosage: UNK
  3. NOCTAMIDE [Concomitant]
  4. COAPROVEL [Concomitant]
     Dosage: UNK
  5. CODEINE SULFATE [Concomitant]
  6. ACETAMINOPHEN [Concomitant]
  7. IRINOTECAN HYDROCHLORIDE [Concomitant]
     Dosage: UNK
  8. PRAZEPAM [Concomitant]

REACTIONS (5)
  - BLOOD CREATINE PHOSPHOKINASE INCREASED [None]
  - CELL DEATH [None]
  - BENZODIAZEPINE DRUG LEVEL [None]
  - COMA [None]
  - HYPOKALAEMIA [None]
